FAERS Safety Report 7326337-4 (Version None)
Quarter: 2011Q1

REPORT INFORMATION
  Report Type: 
  Country: None (occurrence: None)
  Receive Date: 20110302
  Receipt Date: 20110221
  Transmission Date: 20110831
  Serious: Yes (Hospitalization)
  Sender: FDA-Public Use
  Company Number: B0702237A

PATIENT
  Age: 74 Year
  Sex: Female

DRUGS (5)
  1. PREVACID [Concomitant]
  2. SULAR [Concomitant]
  3. AVANDIA [Suspect]
     Dosage: 2MG PER DAY
     Route: 048
     Dates: start: 20050425, end: 20090101
  4. ZESTRIL [Concomitant]
  5. LIPITOR [Concomitant]

REACTIONS (2)
  - CARDIAC FAILURE CONGESTIVE [None]
  - ATRIAL FIBRILLATION [None]
